FAERS Safety Report 6092481-5 (Version None)
Quarter: 2009Q1

REPORT INFORMATION
  Report Type: 
  Country: None (occurrence: None)
  Receive Date: 20090225
  Receipt Date: 20090212
  Transmission Date: 20090719
  Serious: Yes (Other)
  Sender: FDA-Public Use
  Company Number: JP-MERCK-0902USA03639

PATIENT
  Age: 77 Year
  Sex: Female

DRUGS (1)
  1. PEPCID RPD [Suspect]
     Indication: GASTROENTERITIS
     Route: 048
     Dates: start: 20090210, end: 20090210

REACTIONS (1)
  - ELECTROCARDIOGRAM QT PROLONGED [None]
